FAERS Safety Report 8762579 (Version 1)
Quarter: 2012Q4

REPORT INFORMATION
  Report Type: 
  Country: CN (occurrence: CN)
  Receive Date: 20120830
  Receipt Date: 20120830
  Transmission Date: 20130627
  Serious: Yes (Other)
  Sender: FDA-Public Use
  Company Number: CN-ROCHE-1110785

PATIENT
  Sex: Female
  Weight: 55.6 kg

DRUGS (2)
  1. ROCEPHIN [Suspect]
     Indication: INFECTION
     Route: 041
     Dates: start: 20110907, end: 20110907
  2. SODIUM CHLORIDE [Concomitant]
     Route: 041
     Dates: start: 20110907, end: 20110907

REACTIONS (3)
  - Hypotension [Recovering/Resolving]
  - Rash [Recovering/Resolving]
  - Pruritus [Recovering/Resolving]
